FAERS Safety Report 23637276 (Version 1)
Quarter: 2024Q1

REPORT INFORMATION
  Report Type: Report from Study
  Country: TR (occurrence: TR)
  Receive Date: 20240315
  Receipt Date: 20240315
  Transmission Date: 20240409
  Serious: Yes (Hospitalization)
  Sender: FDA-Public Use
  Company Number: TR-SOCIETAL CDMO GAINESVILLE, LLC-SOC-2024-000005

PATIENT
  Age: 18 Year
  Sex: Female
  Weight: 48 kg

DRUGS (1)
  1. VERAPAMIL HYDROCHLORIDE [Suspect]
     Active Substance: VERAPAMIL HYDROCHLORIDE
     Indication: Product used for unknown indication
     Dosage: 1.8 GRAM, UNK
     Route: 048

REACTIONS (6)
  - Shock [Unknown]
  - Oedema peripheral [Unknown]
  - Loss of consciousness [Unknown]
  - Bradycardia [Unknown]
  - Atrioventricular block complete [Unknown]
  - Overdose [Unknown]
